FAERS Safety Report 21927280 (Version 1)
Quarter: 2023Q1

REPORT INFORMATION
  Report Type: Report from Study
  Country: IN (occurrence: IN)
  Receive Date: 20230130
  Receipt Date: 20230130
  Transmission Date: 20230417
  Serious: Yes (Other)
  Sender: FDA-Public Use
  Company Number: IN-002147023-NVSC2023IN019592

PATIENT
  Age: 55 Year
  Sex: Female

DRUGS (2)
  1. RIBOCICLIB [Suspect]
     Active Substance: RIBOCICLIB
     Indication: Breast cancer metastatic
     Dosage: 600 MG, QD (FOR 21 DAYS AND 7 DAYS OFF)
     Route: 065
     Dates: start: 20211224
  2. RIBOCICLIB [Suspect]
     Active Substance: RIBOCICLIB
     Dosage: 600 MG, QD (FOR 21 DAYS AND 7 DAYS OFF)
     Route: 065
     Dates: start: 20220908

REACTIONS (5)
  - Vertebral lesion [Unknown]
  - Breast induration [Unknown]
  - Central nervous system lesion [Unknown]
  - Breast cancer metastatic [Unknown]
  - Malignant neoplasm progression [Unknown]

NARRATIVE: CASE EVENT DATE: 20220419
